FAERS Safety Report 21516668 (Version 5)
Quarter: 2023Q1

REPORT INFORMATION
  Report Type: Report from Study
  Country: US (occurrence: US)
  Receive Date: 20221027
  Receipt Date: 20230324
  Transmission Date: 20230418
  Serious: No
  Sender: FDA-Public Use
  Company Number: US-ACADIA PHARMACEUTICALS INC.-ACA-2022-PIM-003409

PATIENT
  Age: 70 Year
  Sex: Male

DRUGS (8)
  1. NUPLAZID [Suspect]
     Active Substance: PIMAVANSERIN TARTRATE
     Indication: Parkinson^s disease psychosis
     Dosage: 34 MILLIGRAM, QD
     Dates: start: 20220629
  2. NUPLAZID [Suspect]
     Active Substance: PIMAVANSERIN TARTRATE
     Dosage: 34 MILLIGRAM, QD
     Route: 065
     Dates: start: 20220801, end: 20221107
  3. NUPLAZID [Suspect]
     Active Substance: PIMAVANSERIN TARTRATE
     Dosage: 34 MILLIGRAM, QD
     Route: 065
     Dates: start: 20221112, end: 20230129
  4. SELEGILINE [Concomitant]
     Active Substance: SELEGILINE
  5. CARBIDOPA LEVODOPA [Concomitant]
     Active Substance: CARBIDOPA\LEVODOPA
  6. DULOXETINE [Concomitant]
     Active Substance: DULOXETINE
  7. QUETIAPINE [Concomitant]
     Active Substance: QUETIAPINE
  8. CLOZAPINE [Concomitant]
     Active Substance: CLOZAPINE

REACTIONS (5)
  - Product dose omission issue [Recovered/Resolved]
  - COVID-19 [Recovered/Resolved]
  - Diarrhoea [Not Recovered/Not Resolved]
  - Drug ineffective [Unknown]
  - Drug ineffective [Unknown]

NARRATIVE: CASE EVENT DATE: 20221018
